FAERS Safety Report 4361035-0 (Version None)
Quarter: 2004Q2

REPORT INFORMATION
  Report Type: 
  Country: None (occurrence: None)
  Receive Date: 20040514
  Receipt Date: 20040427
  Transmission Date: 20050107
  Serious: Yes (Disabling)
  Sender: FDA-Public Use
  Company Number: 200403189

PATIENT
  Sex: Male

DRUGS (1)
  1. PRED FORTE [Suspect]
     Indication: EYE REDNESS
     Dates: start: 20020601

REACTIONS (5)
  - ACCOMMODATION DISORDER [None]
  - CILIARY BODY DISORDER [None]
  - IMPAIRED WORK ABILITY [None]
  - IRIS INJURY [None]
  - MYDRIASIS [None]
